FAERS Safety Report 9918759 (Version 1)
Quarter: 2014Q1

REPORT INFORMATION
  Report Type: Report from Study
  Country: US (occurrence: US)
  Receive Date: 20140224
  Receipt Date: 20140224
  Transmission Date: 20141002
  Serious: Yes (Hospitalization)
  Sender: FDA-Public Use
  Company Number: US-ROCHE-1333020

PATIENT
  Sex: Male

DRUGS (12)
  1. LUCENTIS [Suspect]
     Indication: DIABETIC RETINAL OEDEMA
     Route: 050
  2. LUCENTIS [Suspect]
     Route: 050
     Dates: start: 20110613
  3. AVASTIN [Suspect]
     Indication: PRODUCT USED FOR UNKNOWN INDICATION
     Route: 050
     Dates: start: 20101116, end: 20110506
  4. ACTOS [Concomitant]
  5. ARAVA [Concomitant]
     Route: 048
  6. LANSOPRAZOLE [Concomitant]
     Dosage: QAM
     Route: 048
  7. NOVOLOG [Concomitant]
     Dosage: 70/30 QAM
     Route: 065
  8. VYTORIN [Concomitant]
     Dosage: 10/20 MG
     Route: 065
  9. AVAPRO [Concomitant]
  10. FLOMAX (UNITED STATES) [Concomitant]
  11. TIMOLOL [Concomitant]
     Route: 065
  12. JANUVIA [Concomitant]

REACTIONS (13)
  - Pulmonary mycosis [Unknown]
  - Vision blurred [Unknown]
  - Reading disorder [Unknown]
  - Asthenia [Unknown]
  - Sinus congestion [Unknown]
  - Dyspnoea [Unknown]
  - Arthralgia [Unknown]
  - Aneurysm [Unknown]
  - Retinal haemorrhage [Unknown]
  - Cataract nuclear [Unknown]
  - Ocular hypertension [Unknown]
  - Temperature intolerance [Unknown]
  - Nephrolithiasis [Unknown]
